FAERS Safety Report 5391792-6 (Version None)
Quarter: 2007Q3

REPORT INFORMATION
  Report Type: 
  Country: None (occurrence: None)
  Receive Date: 20070719
  Receipt Date: 20070709
  Transmission Date: 20080115
  Serious: Yes (Hospitalization)
  Sender: FDA-Public Use
  Company Number: US-ABBOTT-07P-163-0373944-00

PATIENT
  Sex: Male
  Weight: 86.26 kg

DRUGS (5)
  1. SYNTHROID [Suspect]
     Indication: HYPOTHYROIDISM
     Route: 048
     Dates: start: 19940101
  2. SYNTHROID [Suspect]
  3. SYNTHROID [Suspect]
  4. SYNTHROID [Suspect]
  5. LISINOPRIL [Concomitant]
     Indication: HYPERTENSION
     Route: 048

REACTIONS (4)
  - BLOOD THYROID STIMULATING HORMONE INCREASED [None]
  - MUSCLE SPASMS [None]
  - MYALGIA [None]
  - THYROID DISORDER [None]
